FAERS Safety Report 8805047 (Version 1)
Quarter: 2012Q4

REPORT INFORMATION
  Report Type: 
  Country: US (occurrence: US)
  Receive Date: 20120924
  Receipt Date: 20120924
  Transmission Date: 20130627
  Serious: Yes (Other)
  Sender: FDA-Public Use
  Company Number: CHPA2012US020199

PATIENT
  Age: 57 Year
  Sex: Male

DRUGS (5)
  1. MYOFLEX ANALGESIC CREME [Suspect]
     Indication: CONTUSION
     Dosage: UNK
     Route: 061
     Dates: start: 1982
  2. DRUG THERAPY NOS [Concomitant]
  3. FLOMAX ^BOEHRINGER INGELHEIM^ [Concomitant]
     Dosage: UNK
     Dates: start: 2012
  4. OXYCODONE [Concomitant]
     Dosage: UNK, UNK
     Route: 048
     Dates: start: 2000
  5. ROXICODONE [Concomitant]
     Dosage: UNK, UNK
     Route: 048
     Dates: start: 201103

REACTIONS (4)
  - Spinal cord injury cervical [Unknown]
  - Intervertebral disc protrusion [Unknown]
  - Expired drug administered [Unknown]
  - Off label use [Unknown]
